FAERS Safety Report 5200190-7 (Version None)
Quarter: 2007Q1

REPORT INFORMATION
  Report Type: 
  Country: None (occurrence: None)
  Receive Date: 20070103
  Receipt Date: 20061222
  Transmission Date: 20070707
  Serious: Yes (Other)
  Sender: FDA-Public Use
  Company Number: 234296

PATIENT
  Age: 50 Year
  Sex: Male

DRUGS (1)
  1. RITUXAN [Suspect]
     Indication: NON-HODGKIN'S LYMPHOMA
     Dosage: UNK, 1/WEEK; INTRAVENOUS
     Route: 042

REACTIONS (13)
  - AMNESIA [None]
  - ANGINA PECTORIS [None]
  - CHILLS [None]
  - EMOTIONAL DISORDER [None]
  - FAECAL INCONTINENCE [None]
  - GENERAL PHYSICAL HEALTH DETERIORATION [None]
  - INFLAMMATION [None]
  - MENTAL IMPAIRMENT [None]
  - NERVOUS SYSTEM DISORDER [None]
  - PARALYSIS [None]
  - REGRESSIVE BEHAVIOUR [None]
  - TREMOR [None]
  - URINARY INCONTINENCE [None]
